FAERS Safety Report 15474499 (Version 2)
Quarter: 2018Q4

REPORT INFORMATION
  Report Type: Spontaneous
  Country: US (occurrence: US)
  Receive Date: 20181008
  Receipt Date: 20181031
  Transmission Date: 20190205
  Serious: No
  Sender: FDA-Public Use
  Company Number: US-SUNOVION-2018SUN003783

PATIENT
  Sex: Female
  Weight: 122.45 kg

DRUGS (16)
  1. MONTELUCAST [Concomitant]
     Active Substance: MONTELUKAST SODIUM
     Dosage: 10 MG, UNK
  2. DILTIAZEM. [Concomitant]
     Active Substance: DILTIAZEM
     Dosage: 120 MG, /24 H QD
  3. PRILOSEC [Concomitant]
     Active Substance: OMEPRAZOLE MAGNESIUM
     Dosage: 40 MG BEFORE MEAL
  4. AMBIEN [Concomitant]
     Active Substance: ZOLPIDEM TARTRATE
     Dosage: 10 MG, 1 QHS
  5. OMEPRAZOLE. [Concomitant]
     Active Substance: OMEPRAZOLE
     Dosage: 40 MG, BID
  6. ARNUITY ELLIPTA [Concomitant]
     Active Substance: FLUTICASONE FUROATE
     Dosage: 100 ONE PUFF EVERY MORNING
  7. FLONASE [Concomitant]
     Active Substance: FLUTICASONE PROPIONATE
     Dosage: 0.05 %, ONE PUFF EACH NARE BID
  8. LONHALA MAGNAIR [Suspect]
     Active Substance: GLYCOPYRROLATE
     Dosage: UNKNOWN
     Route: 055
  9. ATROVENT [Concomitant]
     Active Substance: IPRATROPIUM BROMIDE
     Dosage: 0.02 %, TID
  10. AZELSTINE [Concomitant]
     Dosage: TWO PUFFS TWICE DAILY EACH NOSTRIL
  11. ATROVENT HFA [Concomitant]
     Active Substance: IPRATROPIUM BROMIDE
     Dosage: TWO PUFFS EVERY FOUR TO SIX HOURS AS NECCESSARY
  12. HYDROCHLOROTHIAZIDE W/TRIAMTERENE [Concomitant]
     Active Substance: HYDROCHLOROTHIAZIDE\TRIAMTERENE
     Dosage: 25 MG- 37.5 MG QD
  13. ZANAFLEX [Concomitant]
     Active Substance: TIZANIDINE HYDROCHLORIDE
     Indication: PAIN
  14. ZANAFLEX [Concomitant]
     Active Substance: TIZANIDINE HYDROCHLORIDE
     Dosage: UNK, AS NECESSARY PAIN
  15. IBUPROFEN. [Concomitant]
     Active Substance: IBUPROFEN
     Dosage: 800 MG, UNK
  16. MAALOX ANTACID [Concomitant]
     Active Substance: ALUMINUM HYDROXIDE\DIMETHICONE\MAGNESIUM HYDROXIDE
     Dosage: UNK, QHS

REACTIONS (1)
  - Throat irritation [Unknown]
